FAERS Safety Report 7438039-4 (Version None)
Quarter: 2011Q2

REPORT INFORMATION
  Report Type: 
  Country: None (occurrence: None)
  Receive Date: 20110426
  Receipt Date: 20110414
  Transmission Date: 20111010
  Serious: Yes (Other)
  Sender: FDA-Public Use
  Company Number: PHHY2011ZA32516

PATIENT
  Sex: Female

DRUGS (1)
  1. EXJADE [Suspect]
     Indication: THALASSAEMIA
     Dosage: 30 MG/KG

REACTIONS (3)
  - PANCREATITIS [None]
  - HAEMATOCHEZIA [None]
  - BLOOD AMYLASE INCREASED [None]
